FAERS Safety Report 10090660 (Version 1)
Quarter: 2014Q2

REPORT INFORMATION
  Report Type: Spontaneous
  Country: US (occurrence: US)
  Receive Date: 20140421
  Receipt Date: 20140421
  Transmission Date: 20141212
  Serious: Yes (Other)
  Sender: FDA-Public Use
  Company Number: PHHY2014US045150

PATIENT
  Sex: Male

DRUGS (1)
  1. BUPROPION [Suspect]

REACTIONS (1)
  - Drug abuse [Unknown]
